FAERS Safety Report 4563581-3 (Version None)
Quarter: 2005Q1

REPORT INFORMATION
  Report Type: 
  Country: None (occurrence: None)
  Receive Date: 20050128
  Receipt Date: 20041018
  Transmission Date: 20050727
  Serious: No
  Sender: FDA-Public Use
  Company Number: US-GLAXOSMITHKLINE-A0530220A

PATIENT
  Sex: Male

DRUGS (2)
  1. BUPROPION HCL [Suspect]
     Indication: ILL-DEFINED DISORDER
     Route: 048
     Dates: start: 20040101, end: 20040101
  2. LUVOX [Concomitant]

REACTIONS (1)
  - PAIN [None]
